FAERS Safety Report 5209646-4 (Version None)
Quarter: 2007Q1

REPORT INFORMATION
  Report Type: 
  Country: None (occurrence: None)
  Receive Date: 20070116
  Receipt Date: 20070109
  Transmission Date: 20070707
  Serious: Yes (Disabling, Other)
  Sender: FDA-Public Use
  Company Number: IE-PFIZER INC-2006151497

PATIENT
  Sex: Female
  Weight: 75.4 kg

DRUGS (3)
  1. SOMAVERT [Suspect]
     Indication: ACROMEGALY
     Route: 058
  2. LEVOTHYROXINE SODIUM [Concomitant]
     Indication: HYPOPITUITARISM
     Dosage: DAILY DOSE:50MCG-FREQ:DAILY
  3. HYDROCORTISONE [Concomitant]
     Indication: HYPOPITUITARISM
     Route: 048
     Dates: start: 20000101

REACTIONS (5)
  - BREAST ABSCESS [None]
  - MOUTH ULCERATION [None]
  - PALATAL DISORDER [None]
  - RASH [None]
  - STOMATITIS [None]
